FAERS Safety Report 8378622-5 (Version None)
Quarter: 2012Q2

REPORT INFORMATION
  Report Type: 
  Country: None (occurrence: None)
  Receive Date: 20120522
  Receipt Date: 20110414
  Transmission Date: 20120825
  Serious: No
  Sender: FDA-Public Use
  Company Number: US-ASTRAZENECA-2011SE21868

PATIENT
  Age: 76 Year
  Sex: Male

DRUGS (8)
  1. CLOPIDOGREL [Interacting]
     Indication: CEREBROVASCULAR ACCIDENT
  2. SPIRONOLACTONE [Suspect]
  3. POTASSIUM CHLORIDE [Concomitant]
  4. FUROSEMIDE [Concomitant]
  5. HYDRALAZINE HCL [Concomitant]
  6. COZAAR [Concomitant]
  7. LOPRESSOR [Concomitant]
  8. PRILOSEC [Interacting]
     Route: 048

REACTIONS (2)
  - BREAST PAIN [None]
  - DRUG INTERACTION [None]
